FAERS Safety Report 12720666 (Version 2)
Quarter: 2016Q3

REPORT INFORMATION
  Report Type: Report from Study
  Country: US (occurrence: US)
  Receive Date: 20160907
  Receipt Date: 20160912
  Transmission Date: 20161109
  Serious: Yes (Hospitalization)
  Sender: FDA-Public Use
  Company Number: US-GILEAD-2016-0227593

PATIENT
  Age: 11 Year
  Sex: Female

DRUGS (6)
  1. AMBRISENTAN [Suspect]
     Active Substance: AMBRISENTAN
     Dosage: 2.5 MG, QD
     Route: 065
  2. AMBRISENTAN [Suspect]
     Active Substance: AMBRISENTAN
     Indication: HEART DISEASE CONGENITAL
     Dosage: 1.25 MG, QD
     Route: 065
  3. REVATIO [Concomitant]
     Active Substance: SILDENAFIL CITRATE
  4. AMBRISENTAN [Suspect]
     Active Substance: AMBRISENTAN
     Indication: PULMONARY HYPERTENSION
     Dosage: 5 MG, QD
     Route: 065
  5. SILDENAFIL. [Concomitant]
     Active Substance: SILDENAFIL
  6. REMODULIN [Suspect]
     Active Substance: TREPROSTINIL
     Indication: PRODUCT USED FOR UNKNOWN INDICATION
     Dosage: UNK
     Route: 065
     Dates: start: 20160830

REACTIONS (14)
  - Gastric disorder [Not Recovered/Not Resolved]
  - Infusion site erythema [Recovered/Resolved]
  - Pallor [Unknown]
  - Nausea [Unknown]
  - Painful respiration [Not Recovered/Not Resolved]
  - Chest discomfort [Unknown]
  - Headache [Unknown]
  - Vomiting [Unknown]
  - Infusion site pain [Recovered/Resolved]
  - Abdominal lymphadenopathy [Not Recovered/Not Resolved]
  - Chest pain [Unknown]
  - Infusion site swelling [Unknown]
  - Off label use [Not Recovered/Not Resolved]
  - Dyspnoea [Unknown]
